FAERS Safety Report 19088856 (Version 3)
Quarter: 2021Q2

REPORT INFORMATION
  Report Type: Report from Study
  Country: US (occurrence: US)
  Receive Date: 20210403
  Receipt Date: 20210628
  Transmission Date: 20210717
  Serious: Yes (Hospitalization, Other)
  Sender: FDA-Public Use
  Company Number: NVSC2021US069321

PATIENT
  Age: 85 Year
  Sex: Female

DRUGS (1)
  1. ENTRESTO [Suspect]
     Active Substance: SACUBITRIL\VALSARTAN
     Indication: CARDIAC FAILURE CONGESTIVE
     Dosage: 50 MG (24/26 MG), BID
     Route: 048
     Dates: start: 20210224

REACTIONS (5)
  - Dry throat [Unknown]
  - Dizziness [Unknown]
  - Cardiac failure congestive [Unknown]
  - Blood pressure fluctuation [Unknown]
  - Cough [Unknown]

NARRATIVE: CASE EVENT DATE: 202102
